FAERS Safety Report 23922127 (Version 1)
Quarter: 2024Q2

REPORT INFORMATION
  Report Type: Spontaneous
  Country: UY (occurrence: UY)
  Receive Date: 20240531
  Receipt Date: 20240531
  Transmission Date: 20240715
  Serious: No
  Sender: FDA-Public Use
  Company Number: UY-TOLMAR, INC.-24UY049239

PATIENT
  Age: 8 Year
  Sex: Female

DRUGS (2)
  1. ELIGARD [Suspect]
     Active Substance: LEUPROLIDE ACETATE
     Indication: Precocious puberty
     Dosage: 22.5 MILLIGRAM
     Route: 023
     Dates: start: 20240430
  2. ELIGARD [Suspect]
     Active Substance: LEUPROLIDE ACETATE
     Indication: Precocious puberty
     Dosage: UNK

REACTIONS (6)
  - Injection site erythema [Recovering/Resolving]
  - Incorrect route of product administration [Unknown]
  - Encapsulation reaction [Not Recovered/Not Resolved]
  - Injection site warmth [Recovering/Resolving]
  - Injection site mass [Not Recovered/Not Resolved]
  - Drug ineffective [Unknown]

NARRATIVE: CASE EVENT DATE: 20240430
